FAERS Safety Report 9787149 (Version 2)
Quarter: 2014Q1

REPORT INFORMATION
  Report Type: Report from Study
  Country: FR (occurrence: FR)
  Receive Date: 20131228
  Receipt Date: 20140108
  Transmission Date: 20141002
  Serious: Yes (Hospitalization)
  Sender: FDA-Public Use
  Company Number: FR-EXELIXIS-XL18413003811

PATIENT
  Age: 65 Year
  Sex: Male
  Weight: 72.5 kg

DRUGS (17)
  1. STILNOX [Concomitant]
  2. ENANTONE [Concomitant]
  3. CALCIDOSE VITAMINE D [Concomitant]
  4. DENOSUMAB [Concomitant]
  5. ZOFENIL [Concomitant]
  6. OXYNORM [Concomitant]
  7. ACTISKENAN [Concomitant]
  8. CICAPLASTE BAUME B5 (CREAM) [Concomitant]
  9. DOMPERIDONE [Concomitant]
  10. INNOHEP [Concomitant]
     Dosage: UNK
  11. XL184 [Suspect]
     Indication: PROSTATE CANCER
     Dosage: 60 MG, QD
     Route: 048
     Dates: start: 20130527, end: 2013
  12. XL184 [Suspect]
     Dosage: 40 MG, QD
     Route: 048
     Dates: start: 2013
  13. XL184 [Suspect]
     Indication: PROSTATE CANCER
     Dosage: 5 MG, BID
     Route: 048
     Dates: start: 20130527
  14. PREDNISONE [Concomitant]
  15. MOSCONTIN [Concomitant]
  16. IXPRIM [Concomitant]
  17. ATARAX [Concomitant]

REACTIONS (1)
  - Anaemia [Recovered/Resolved]
